FAERS Safety Report 8687221 (Version 2)
Quarter: 2013Q1

REPORT INFORMATION
  Report Type: Spontaneous
  Country: BR (occurrence: BR)
  Receive Date: 20120727
  Receipt Date: 20130226
  Transmission Date: 20140127
  Serious: Yes (Other)
  Sender: FDA-Public Use
  Company Number: PHHY2012BR064261

PATIENT
  Sex: Female

DRUGS (4)
  1. DIOVAN HCT [Suspect]
     Indication: BLOOD PRESSURE ABNORMAL
     Dosage: 1 DF (320MG/25 MG), QD (MORNING)
  2. CRESTOR [Concomitant]
     Indication: BLOOD VISCOSITY INCREASED
     Dosage: 1 DF (20MG), QD AT NIGHT
  3. ATENOLOL [Concomitant]
     Indication: BLOOD PRESSURE ABNORMAL
     Dosage: 1 DF (50 MG), BID (1 IN THE MORNING AND 1AT NIGHT )
  4. NEXIUM [Concomitant]
     Indication: ABDOMINAL DISCOMFORT
     Dosage: 1 DF (20MG), QD IN THE MORNING

REACTIONS (2)
  - Ischaemia [Recovering/Resolving]
  - Diarrhoea [Recovering/Resolving]
